FAERS Safety Report 13242593 (Version 1)
Quarter: 2017Q1

REPORT INFORMATION
  Report Type: Spontaneous
  Country: None (occurrence: US)
  Receive Date: 20170216
  Receipt Date: 20170216
  Transmission Date: 20170428
  Serious: No
  Sender: FDA-Public Use
  Company Number: None

PATIENT
  Age: 53 Year
  Sex: Female

DRUGS (1)
  1. IMATINIB 400MG IMATINIB [Suspect]
     Active Substance: IMATINIB
     Indication: GASTROINTESTINAL STROMAL TUMOUR
     Dosage: 400MG ONCE EVERY DAY ORALLY
     Route: 048
     Dates: start: 201612

REACTIONS (2)
  - Local swelling [None]
  - Eyelid oedema [None]

NARRATIVE: CASE EVENT DATE: 20170214
